FAERS Safety Report 20817153 (Version 1)
Quarter: 2022Q2

REPORT INFORMATION
  Report Type: Report from Study
  Country: US (occurrence: None)
  Receive Date: 20220512
  Receipt Date: 20220512
  Transmission Date: 20220721
  Serious: Yes (Death)
  Sender: FDA-Public Use
  Company Number: US-ROCHE-3046979

PATIENT
  Age: 48 Year
  Sex: Female

DRUGS (4)
  1. BEVACIZUMAB [Suspect]
     Active Substance: BEVACIZUMAB
     Indication: Fallopian tube cancer
     Route: 042
     Dates: start: 20080723
  2. PACLITAXEL [Suspect]
     Active Substance: PACLITAXEL
     Indication: Fallopian tube cancer
     Dosage: 3 HOURS ON DAY1
     Route: 042
     Dates: start: 20080723
  3. CARBOPLATIN [Suspect]
     Active Substance: CARBOPLATIN
     Indication: Fallopian tube cancer
     Dosage: AUC5 IV OVER 30MIN ON DAY 1
     Route: 042
     Dates: start: 20080723
  4. DOCETAXEL [Suspect]
     Active Substance: DOCETAXEL
     Indication: Fallopian tube cancer
     Dosage: 1HR ON DAY 1
     Route: 042
     Dates: start: 20080723

REACTIONS (2)
  - Febrile neutropenia [Fatal]
  - Infection [Fatal]

NARRATIVE: CASE EVENT DATE: 20081022
